FAERS Safety Report 5071245-5 (Version None)
Quarter: 2006Q3

REPORT INFORMATION
  Report Type: 
  Country: None (occurrence: None)
  Receive Date: 20060714
  Receipt Date: 20060427
  Transmission Date: 20061208
  Serious: No
  Sender: FDA-Public Use
  Company Number: 2006SP001856

PATIENT
  Age: 52 Year
  Sex: Female
  Weight: 58.9676 kg

DRUGS (2)
  1. LUNESTA [Suspect]
     Indication: INSOMNIA
     Dosage: 3 MG; HS; ORAL
     Route: 048
     Dates: start: 20060401
  2. MIRALAX [Concomitant]

REACTIONS (1)
  - DRUG EFFECT DECREASED [None]
